FAERS Safety Report 4927940-9 (Version None)
Quarter: 2006Q1

REPORT INFORMATION
  Report Type: 
  Country: None (occurrence: None)
  Receive Date: 20060223
  Receipt Date: 20060213
  Transmission Date: 20060701
  Serious: Yes (Death)
  Sender: FDA-Public Use
  Company Number: 2006017309

PATIENT
  Age: 71 Year
  Sex: Male

DRUGS (1)
  1. VFEND [Suspect]
     Indication: INFECTION
     Dosage: 400 MG (UNKNOWN); INTRAVENOUS
     Route: 042
     Dates: start: 20060119

REACTIONS (4)
  - ABNORMAL BEHAVIOUR [None]
  - EUPHORIC MOOD [None]
  - MENTAL DISORDER [None]
  - RESTLESSNESS [None]
